FAERS Safety Report 8068521-0 (Version None)
Quarter: 2012Q1

REPORT INFORMATION
  Report Type: 
  Country: None (occurrence: None)
  Receive Date: 20120124
  Receipt Date: 20111104
  Transmission Date: 20120608
  Serious: No
  Sender: FDA-Public Use
  Company Number: US-AMGEN-USASP2011058045

PATIENT
  Age: 70 Year
  Sex: Female

DRUGS (9)
  1. REQUIP [Concomitant]
     Dosage: UNK
  2. METOPROLOL TARTRATE [Concomitant]
     Dosage: UNK
  3. PROLIA [Suspect]
     Indication: OSTEOPOROSIS POSTMENOPAUSAL
     Dosage: 60 MG, Q6MO
     Dates: start: 20110401
  4. MOTRIN [Concomitant]
     Dosage: UNK
  5. NEUROTIN                           /00949202/ [Concomitant]
     Dosage: 1 MG, QD
  6. LORTAB [Concomitant]
     Dosage: UNK
  7. CALCIUM WITH VITAMIN D             /00944201/ [Concomitant]
     Dosage: 1 MG, QD
  8. ASPIRIN [Concomitant]
     Dosage: 1 MG, QD
  9. SYNTHROID [Concomitant]
     Dosage: UNK

REACTIONS (1)
  - TOOTH DISORDER [None]
